FAERS Safety Report 5572931-0 (Version None)
Quarter: 2007Q4

REPORT INFORMATION
  Report Type: 
  Country: None (occurrence: None)
  Receive Date: 20071219
  Receipt Date: 20071219
  Transmission Date: 20080405
  Serious: No
  Sender: FDA-Public Use
  Company Number: None

PATIENT
  Age: 56 Year
  Sex: Male
  Weight: 132.4503 kg

DRUGS (8)
  1. RISPERIDONE [Suspect]
     Dosage: 4MG PO
     Route: 048
  2. LISINOPRIL [Concomitant]
  3. METFORMIN HCL [Concomitant]
  4. OXYBUTYNIN CHLORIDE [Concomitant]
  5. ABILIFY [Concomitant]
  6. CARBAMAZEPINE [Concomitant]
  7. METAMUCIL [Concomitant]
  8. COLACE [Concomitant]

REACTIONS (2)
  - PAIN [None]
  - RETROGRADE EJACULATION [None]
